FAERS Safety Report 8133395-6 (Version None)
Quarter: 2012Q1

REPORT INFORMATION
  Report Type: 
  Country: None (occurrence: None)
  Receive Date: 20120213
  Receipt Date: 20120201
  Transmission Date: 20120608
  Serious: Yes (Other)
  Sender: FDA-Public Use
  Company Number: HR-TEVA-321607ISR

PATIENT
  Age: 65 Year
  Sex: Female

DRUGS (5)
  1. KALCIJ FOLINATE PLIVA-TEVA [Suspect]
     Indication: HEPATIC NEOPLASM MALIGNANT
     Route: 042
     Dates: start: 20120104, end: 20120104
  2. IRUZID [Concomitant]
     Indication: HYPERTENSION
     Route: 048
  3. MARTEFARIN [Concomitant]
     Indication: THROMBOPHLEBITIS
     Dosage: 3 MILLIGRAM;
     Route: 048
  4. ELOXATIN [Suspect]
     Indication: HEPATIC NEOPLASM MALIGNANT
     Route: 042
     Dates: start: 20120104, end: 20120104
  5. FENTAGESIC-TEVA [Concomitant]
     Indication: COLON CANCER
     Dosage: 50 MICROGRAM;
     Route: 062

REACTIONS (1)
  - LARYNGOSPASM [None]
